FAERS Safety Report 16977558 (Version 2)
Quarter: 2020Q1

REPORT INFORMATION
  Report Type: Spontaneous
  Country: DE (occurrence: DE)
  Receive Date: 20191031
  Receipt Date: 20200205
  Transmission Date: 20200409
  Serious: No
  Sender: FDA-Public Use
  Company Number: DE-ROCHE-2450388

PATIENT
  Sex: Female

DRUGS (3)
  1. KANJINTI [Suspect]
     Active Substance: TRASTUZUMAB-ANNS
     Route: 042
     Dates: start: 20180119
  2. PERJETA [Suspect]
     Active Substance: PERTUZUMAB
     Indication: NEOPLASM MALIGNANT
     Route: 042
     Dates: start: 20180119
  3. KANJINTI [Suspect]
     Active Substance: TRASTUZUMAB-ANNS
     Indication: NEOPLASM MALIGNANT
     Route: 058
     Dates: start: 2014

REACTIONS (1)
  - Pruritus [Not Recovered/Not Resolved]
